FAERS Safety Report 5357702-2 (Version None)
Quarter: 2007Q2

REPORT INFORMATION
  Report Type: 
  Country: None (occurrence: None)
  Receive Date: 20070614
  Receipt Date: 20070608
  Transmission Date: 20071010
  Serious: Yes (Other)
  Sender: FDA-Public Use
  Company Number: US-PFIZER INC-2007047301

PATIENT
  Sex: Male
  Weight: 63.5 kg

DRUGS (3)
  1. DETROL LA [Suspect]
     Indication: HYPERTONIC BLADDER
     Dates: start: 20070401, end: 20070608
  2. DYNACIRC [Concomitant]
  3. ATENOLOL [Concomitant]

REACTIONS (1)
  - GAIT DISTURBANCE [None]
